FAERS Safety Report 5585492-7 (Version None)
Quarter: 2008Q1

REPORT INFORMATION
  Report Type: 
  Country: None (occurrence: None)
  Receive Date: 20080104
  Receipt Date: 20071207
  Transmission Date: 20080703
  Serious: Yes (Other)
  Sender: FDA-Public Use
  Company Number: 2007S1013350

PATIENT
  Age: 13 Year
  Sex: Female

DRUGS (7)
  1. AZATHIOPRINE [Suspect]
     Indication: RENAL TRANSPLANT
     Dosage: 50 MG;TABLET;ORAL;X1
     Route: 048
     Dates: start: 20071205, end: 20071205
  2. PROGRAF [Concomitant]
  3. SODIUM BICARBONATE IN PLASTIC CONTAINER [Concomitant]
  4. PREDNISONE [Concomitant]
  5. PEPCID [Concomitant]
  6. EPIPEN [Concomitant]
  7. ALBUTEROL [Concomitant]

REACTIONS (3)
  - BRONCHOSPASM [None]
  - DYSPNOEA [None]
  - REACTION TO DRUG EXCIPIENTS [None]
